FAERS Safety Report 14159432 (Version 3)
Quarter: 2018Q3

REPORT INFORMATION
  Report Type: Spontaneous
  Country: US (occurrence: US)
  Receive Date: 20171103
  Receipt Date: 20180914
  Transmission Date: 20181010
  Serious: Yes (Hospitalization, Other)
  Sender: FDA-Public Use
  Company Number: US-DSJP-DSU-2017-139850

PATIENT

DRUGS (1)
  1. BENICAR [Suspect]
     Active Substance: OLMESARTAN MEDOXOMIL
     Indication: PRODUCT USED FOR UNKNOWN INDICATION
     Dosage: 40 MG, QD
     Route: 048
     Dates: start: 20100410, end: 20170611

REACTIONS (7)
  - Impaired gastric emptying [Recovering/Resolving]
  - Diverticulum [Not Recovered/Not Resolved]
  - Hepatic steatosis [Unknown]
  - Sprue-like enteropathy [Recovering/Resolving]
  - Gastrointestinal bacterial overgrowth [Not Recovered/Not Resolved]
  - Rectal polyp [Unknown]
  - Haemorrhoids [Unknown]

NARRATIVE: CASE EVENT DATE: 2010
